FAERS Safety Report 19081641 (Version 2)
Quarter: 2021Q2

REPORT INFORMATION
  Report Type: Report from Study
  Country: TR (occurrence: TR)
  Receive Date: 20210331
  Receipt Date: 20210405
  Transmission Date: 20210717
  Serious: Yes (Other)
  Sender: FDA-Public Use
  Company Number: TR-JNJFOC-20210350789

PATIENT

DRUGS (1)
  1. STELARA [Suspect]
     Active Substance: USTEKINUMAB
     Indication: PSORIASIS
     Route: 058

REACTIONS (6)
  - Idiopathic intracranial hypertension [Unknown]
  - Hypertension [Unknown]
  - Treatment noncompliance [Unknown]
  - Flushing [Unknown]
  - Drug ineffective [Unknown]
  - Therapeutic product effect decreased [Unknown]
